FAERS Safety Report 21156255 (Version 1)
Quarter: 2022Q3

REPORT INFORMATION
  Report Type: Spontaneous
  Country: ES (occurrence: ES)
  Receive Date: 20220801
  Receipt Date: 20220801
  Transmission Date: 20221026
  Serious: No
  Sender: FDA-Public Use
  Company Number: ES-PADAGIS-2022PAD00211

PATIENT

DRUGS (4)
  1. IMIQUIMOD [Suspect]
     Active Substance: IMIQUIMOD
     Indication: Dermatitis atopic
     Dosage: UNK
     Route: 061
  2. IMIQUIMOD [Suspect]
     Active Substance: IMIQUIMOD
     Indication: Molluscum contagiosum
  3. POTASSIUM HYDROXIDE [Suspect]
     Active Substance: POTASSIUM HYDROXIDE
     Indication: Dermatitis atopic
     Dosage: UNK
     Route: 061
  4. POTASSIUM HYDROXIDE [Suspect]
     Active Substance: POTASSIUM HYDROXIDE
     Indication: Molluscum contagiosum

REACTIONS (4)
  - Condition aggravated [Unknown]
  - Molluscum contagiosum [Unknown]
  - Dermatitis atopic [Unknown]
  - Product use in unapproved indication [Unknown]
